FAERS Safety Report 20664197 (Version 2)
Quarter: 2022Q2

REPORT INFORMATION
  Report Type: Spontaneous
  Country: US (occurrence: None)
  Receive Date: 20220401
  Receipt Date: 20220405
  Transmission Date: 20220721
  Serious: Yes (Death, Congenital Anomaly)
  Sender: FDA-Public Use
  Company Number: 2022A134087

PATIENT
  Age: 0 Year
  Sex: Female

DRUGS (6)
  1. SEROQUEL [Suspect]
     Active Substance: QUETIAPINE FUMARATE
     Indication: Schizoaffective disorder bipolar type
     Route: 048
  2. SEROQUEL [Concomitant]
     Active Substance: QUETIAPINE FUMARATE
     Indication: Schizoaffective disorder bipolar type
  3. XANAX [Concomitant]
     Active Substance: ALPRAZOLAM
  4. LITHIUM [Concomitant]
     Active Substance: LITHIUM
  5. DOXEPIN [Concomitant]
     Active Substance: DOXEPIN
  6. ZOLOFT [Concomitant]
     Active Substance: SERTRALINE HYDROCHLORIDE

REACTIONS (2)
  - Death [Fatal]
  - Deformity [Not Recovered/Not Resolved]

NARRATIVE: CASE EVENT DATE: 20040101
